FAERS Safety Report 11929164 (Version 1)
Quarter: 2016Q1

REPORT INFORMATION
  Report Type: Spontaneous
  Country: US (occurrence: US)
  Receive Date: 20160120
  Receipt Date: 20160120
  Transmission Date: 20160526
  Serious: Yes (Hospitalization)
  Sender: FDA-Public Use
  Company Number: US-CELGENEUS-USA-2016012099

PATIENT
  Age: 88 Year
  Sex: Male
  Weight: 65.83 kg

DRUGS (3)
  1. REVLIMID [Suspect]
     Active Substance: LENALIDOMIDE
     Indication: CHROMOSOMAL DELETION
     Dosage: 10 MILLIGRAM
     Route: 048
     Dates: start: 201511
  2. REVLIMID [Suspect]
     Active Substance: LENALIDOMIDE
     Indication: CHROMOSOMAL DELETION
  3. REVLIMID [Suspect]
     Active Substance: LENALIDOMIDE
     Indication: AUTOSOMAL CHROMOSOME ANOMALY

REACTIONS (1)
  - Dehydration [Unknown]

NARRATIVE: CASE EVENT DATE: 20160111
